FAERS Safety Report 19212206 (Version 1)
Quarter: 2021Q2

REPORT INFORMATION
  Report Type: Spontaneous
  Country: JP (occurrence: JP)
  Receive Date: 20210504
  Receipt Date: 20210504
  Transmission Date: 20210717
  Serious: Yes (Death, Other)
  Sender: FDA-Public Use
  Company Number: JP-SUN PHARMACEUTICAL INDUSTRIES LTD-2021RR-293560

PATIENT
  Age: 24 Year
  Sex: Female

DRUGS (7)
  1. DOXORUBICIN [Suspect]
     Active Substance: DOXORUBICIN
     Indication: SARCOMA
     Dosage: 3 CYCLES, CUMULATIVE DOSE ON 350 MG/M 2
     Route: 065
     Dates: start: 201806, end: 201808
  2. IFOSFAMIDE. [Concomitant]
     Active Substance: IFOSFAMIDE
     Indication: SARCOMA
     Dosage: 1800 MILLIGRAM/SQ. METER, DAILY, TWO CYCLES
     Route: 065
     Dates: start: 201812, end: 201906
  3. VINCRISTINE [Suspect]
     Active Substance: VINCRISTINE
     Indication: SARCOMA
     Dosage: SIX CYCLES
     Route: 065
     Dates: start: 201806, end: 201812
  4. ETOPOSIDE. [Concomitant]
     Active Substance: ETOPOSIDE
     Indication: SARCOMA
     Dosage: 100 MILLIGRAM/SQ. METER, DAILY, EVERY THREE WEEKS
     Route: 065
  5. TRABECTEDIN [Suspect]
     Active Substance: TRABECTEDIN
     Indication: SARCOMA
     Dosage: THIRD?LINE THERAPY
     Route: 065
     Dates: start: 201906, end: 201907
  6. ACTINOMYCIN D [Concomitant]
     Active Substance: DACTINOMYCIN
     Indication: SARCOMA
     Dosage: UNK
     Route: 065
     Dates: start: 201809, end: 201812
  7. CYCLOPHOSPHAMIDE. [Suspect]
     Active Substance: CYCLOPHOSPHAMIDE
     Indication: SARCOMA
     Dosage: UNK
     Route: 065
     Dates: start: 201806, end: 201812

REACTIONS (5)
  - Febrile neutropenia [Unknown]
  - Arthritis bacterial [Unknown]
  - Disease progression [Unknown]
  - Drug ineffective [Unknown]
  - Therapy partial responder [Unknown]
